FAERS Safety Report 4263480-0 (Version None)
Quarter: 2004Q1

REPORT INFORMATION
  Report Type: 
  Country: None (occurrence: None)
  Receive Date: 20040105
  Receipt Date: 20031217
  Transmission Date: 20041129
  Serious: Yes (Life-Threatening, Hospitalization, Other)
  Sender: FDA-Public Use
  Company Number: FR-BRISTOL-MYERS SQUIBB COMPANY-12460432

PATIENT
  Age: 30 Year
  Sex: Male

DRUGS (6)
  1. BLEOMYCIN SULFATE [Suspect]
     Indication: TESTIS CANCER
     Dosage: DAYS 1-3
     Route: 042
     Dates: start: 20011120
  2. HOLOXAN [Suspect]
     Indication: TESTIS CANCER
     Route: 042
     Dates: start: 20020507, end: 20020601
  3. TAXOL [Suspect]
     Indication: TESTIS CANCER
     Dosage: DAY 3
     Route: 042
     Dates: start: 20011122, end: 20020315
  4. CISPLATYL [Suspect]
     Indication: TESTIS CANCER
     Dosage: 7 CYCLES: 21-NOV-01 TO MAR-02 (DAYS 1-3)  2 CYCLES: 07-MAY-02 AND 01-JUN-02
     Route: 042
     Dates: start: 20011121, end: 20020601
  5. VEPESIDE-SANDOZ [Suspect]
     Indication: TESTIS CANCER
     Dosage: DAYS 1-3
     Route: 048
     Dates: start: 20011120, end: 20020315
  6. ADRIAMYCIN PFS [Suspect]
     Indication: TESTIS CANCER
     Route: 042
     Dates: start: 20020801, end: 20021001

REACTIONS (8)
  - ACUTE MYELOID LEUKAEMIA [None]
  - ALPHA 1 FOETOPROTEIN DECREASED [None]
  - BONE MARROW DEPRESSION [None]
  - COUGH [None]
  - METABOLIC ACIDOSIS [None]
  - NEUROPATHY PERIPHERAL [None]
  - RENAL FAILURE ACUTE [None]
  - RENAL FAILURE CHRONIC [None]
